FAERS Safety Report 17605358 (Version 1)
Quarter: 2020Q1

REPORT INFORMATION
  Report Type: Spontaneous
  Country: US (occurrence: US)
  Receive Date: 20200331
  Receipt Date: 20200331
  Transmission Date: 20200409
  Serious: Yes (Disabling)
  Sender: FDA-Public Use
  Company Number: None

PATIENT
  Age: 40 Year
  Sex: Female

DRUGS (6)
  1. RENFIEXIS [Concomitant]
  2. REMICADE [Suspect]
     Active Substance: INFLIXIMAB
     Indication: RHEUMATOID ARTHRITIS
     Dosage: FREQUENCY:  EVERY 8 WEEKS.
     Route: 042
     Dates: start: 20190801, end: 20200128
  3. XELJANZ [Concomitant]
     Active Substance: TOFACITINIB CITRATE
  4. HUMIRA [Concomitant]
     Active Substance: ADALIMUMAB
  5. REMICADE [Concomitant]
     Active Substance: INFLIXIMAB
  6. RENFLEXIS [Suspect]
     Active Substance: INFLIXIMAB-ABDA
     Indication: RHEUMATOID ARTHRITIS
     Dosage: FREQUENCY: EVERY 6 WEEKS.
     Dates: start: 20200128, end: 20200310

REACTIONS (8)
  - Hypoaesthesia [None]
  - Vision blurred [None]
  - Paraesthesia [None]
  - Muscular weakness [None]
  - Peripheral coldness [None]
  - Inflammation [None]
  - Myelitis [None]
  - Bone lesion [None]

NARRATIVE: CASE EVENT DATE: 20200313
